FAERS Safety Report 9492306 (Version 1)
Quarter: 2013Q3

REPORT INFORMATION
  Report Type: Spontaneous
  Country: DK (occurrence: DK)
  Receive Date: 20130830
  Receipt Date: 20130830
  Transmission Date: 20140515
  Serious: Yes (Other)
  Sender: FDA-Public Use
  Company Number: PHHY2013DK092396

PATIENT
  Age: 56 Year
  Sex: Male

DRUGS (1)
  1. METHYLPREDNISOLONE [Suspect]
     Indication: ORGANISING PNEUMONIA
     Dosage: 4 MG/KG, QD
     Route: 042

REACTIONS (3)
  - Quadriplegia [Recovered/Resolved]
  - Myopathy [Recovered/Resolved]
  - Rhabdomyolysis [Recovered/Resolved]
